FAERS Safety Report 4774818-X (Version None)
Quarter: 2005Q3

REPORT INFORMATION
  Report Type: 
  Country: None (occurrence: None)
  Receive Date: 20050919
  Receipt Date: 20050906
  Transmission Date: 20060218
  Serious: Yes (Hospitalization)
  Sender: FDA-Public Use
  Company Number: 213315

PATIENT
  Age: 66 Year
  Sex: Female
  Weight: 82.0103 kg

DRUGS (20)
  1. RITUXIMAB (RITUXIMAB) CONC FOR SOLUTION FOR INFUSION [Suspect]
     Indication: RHEUMATOID ARTHRITIS
     Dosage: 1000 MG DAYS 1 + 15 INTRAVENOUS
     Route: 042
     Dates: start: 20041117, end: 20041201
  2. METHYLPREDNIUSOLONE (METHYLPREDNISOLONE) [Suspect]
     Indication: RHEUMATOID ARTHRITIS
     Dosage: 100 MG DAYS 1 +15 INTRAVENOUS
     Route: 042
     Dates: start: 20041117, end: 20041201
  3. METHOTREXATE [Concomitant]
  4. SIMVASTATIN [Concomitant]
  5. LEVOTHYROXINE (LEVOTHYROXINE SODIUM) [Concomitant]
  6. ASPIRIN [Concomitant]
  7. FOSAMAX [Concomitant]
  8. VICODIN [Concomitant]
  9. OXYBUTYNIN (OXYBUTYNIN HYDROCHLORIDE) [Concomitant]
  10. ATENOLOL [Concomitant]
  11. IBUPROFEN [Concomitant]
  12. ESOMEPRAZOLE (ESOMEPRAZOLE MAGNESIUM) [Concomitant]
  13. PREDNISONE [Concomitant]
  14. MULTIVITAMIN (MULTIVITAMINS NOS) [Concomitant]
  15. VITAMIN C(ASCORBIC ACID) [Concomitant]
  16. VITAMIN E [Concomitant]
  17. GLUCOSAMINE/CHONDROITIN (GLUCOSAMINE, CHONDROITIN) [Concomitant]
  18. FLAXSEED OIL (LINSEED) [Concomitant]
  19. PROZAC [Concomitant]
  20. PREDNISONE [Suspect]
     Indication: RHEUMATOID ARTHRITIS
     Dosage: ORAL
     Route: 048
     Dates: start: 20041118, end: 20041130

REACTIONS (31)
  - APNOEA [None]
  - ASPERGILLOSIS [None]
  - BRAIN NEOPLASM [None]
  - BRAIN STEM GLIOMA [None]
  - CEREBRAL HAEMATOMA [None]
  - CRANIAL NERVE DISORDER [None]
  - DEAFNESS [None]
  - DIZZINESS [None]
  - DRUG EFFECT DECREASED [None]
  - FALL [None]
  - GLIOBLASTOMA MULTIFORME [None]
  - GRAND MAL CONVULSION [None]
  - GRIP STRENGTH DECREASED [None]
  - HEAD INJURY [None]
  - HEMIPARESIS [None]
  - HEPATIC NEOPLASM [None]
  - LUMBAR RADICULOPATHY [None]
  - LUNG NEOPLASM [None]
  - LYMPHOMA [None]
  - MALIGNANT NEOPLASM PROGRESSION [None]
  - MENINGIOMA [None]
  - MENINGITIS [None]
  - MICROANGIOPATHY [None]
  - NEUROLOGICAL SYMPTOM [None]
  - OEDEMA [None]
  - OLIGODENDROGLIOMA [None]
  - POLYNEUROPATHY [None]
  - REFUSAL OF TREATMENT BY PATIENT [None]
  - REFUSAL OF TREATMENT BY RELATIVE [None]
  - SHOULDER PAIN [None]
  - SINUS DISORDER [None]
